FAERS Safety Report 25837847 (Version 1)
Quarter: 2025Q3

REPORT INFORMATION
  Report Type: Spontaneous
  Country: US (occurrence: None)
  Receive Date: 20250923
  Receipt Date: 20250923
  Transmission Date: 20251020
  Serious: Yes (Other)
  Sender: FDA-CTU
  Company Number: None

PATIENT
  Age: 58 Year
  Sex: Female
  Weight: 115.2 kg

DRUGS (12)
  1. ZEPBOUND [Suspect]
     Active Substance: TIRZEPATIDE
     Indication: Sleep apnoea syndrome
     Dosage: OTHER QUANTITY : 1 INJECTION(S);?OTHER FREQUENCY : 1 WEEKLY;?
     Route: 058
     Dates: start: 20250701, end: 20250921
  2. ZEPBOUND [Suspect]
     Active Substance: TIRZEPATIDE
     Indication: Weight control
  3. CITALOPRAM [Concomitant]
     Active Substance: CITALOPRAM
  4. SIMVASTATIN [Concomitant]
     Active Substance: SIMVASTATIN
  5. OMEPRAZOLE [Concomitant]
     Active Substance: OMEPRAZOLE
  6. MECLIZINE [Concomitant]
     Active Substance: MECLIZINE HYDROCHLORIDE
  7. DEVICE [Concomitant]
     Active Substance: DEVICE
  8. NM-6603 [Concomitant]
     Active Substance: NM-6603
  9. VITAMINS [Concomitant]
     Active Substance: VITAMINS
  10. VITAMIN D3 [Concomitant]
     Active Substance: CHOLECALCIFEROL
  11. PROBIOTICS NOS [Concomitant]
     Active Substance: PROBIOTICS NOS
  12. metamucil fiber supplements [Concomitant]

REACTIONS (9)
  - Hyperhidrosis [None]
  - Dizziness [None]
  - Heart rate increased [None]
  - Presyncope [None]
  - Abdominal pain upper [None]
  - Abdominal distension [None]
  - Flatulence [None]
  - Gastrooesophageal reflux disease [None]
  - Urinary tract disorder [None]

NARRATIVE: CASE EVENT DATE: 20250922
